FAERS Safety Report 5902139-8 (Version None)
Quarter: 2008Q3

REPORT INFORMATION
  Report Type: 
  Country: None (occurrence: None)
  Receive Date: 20080929
  Receipt Date: 20080917
  Transmission Date: 20090109
  Serious: Yes (Other)
  Sender: FDA-Public Use
  Company Number: BR-PFIZER INC-2008079132

PATIENT
  Sex: Male

DRUGS (4)
  1. ZOLOFT [Suspect]
     Indication: BIPOLAR DISORDER
     Dosage: DAILY DOSE:150MG
     Route: 048
     Dates: start: 20020101
  2. EFAVIRENZ [Suspect]
     Indication: HIV INFECTION
     Dates: start: 20040101
  3. LAMIVUDINE [Suspect]
     Indication: HIV INFECTION
     Dates: start: 20040101
  4. ALL OTHER THERAPEUTIC PRODUCTS [Suspect]
     Indication: HORMONE THERAPY

REACTIONS (13)
  - AGEUSIA [None]
  - ANOREXIA [None]
  - ANXIETY [None]
  - BREAST CANCER MALE [None]
  - BREAST MASS [None]
  - GYNAECOMASTIA [None]
  - HIV INFECTION [None]
  - INSOMNIA [None]
  - LIBIDO DECREASED [None]
  - MUSCULAR WEAKNESS [None]
  - NIGHTMARE [None]
  - PYREXIA [None]
  - WEIGHT DECREASED [None]
